FAERS Safety Report 8101653-7 (Version None)
Quarter: 2012Q1

REPORT INFORMATION
  Report Type: 
  Country: None (occurrence: None)
  Receive Date: 20120129
  Receipt Date: 20111011
  Transmission Date: 20120608
  Serious: No
  Sender: FDA-Public Use
  Company Number: US-ABBOTT-11P-163-0863311-00

PATIENT
  Sex: Female
  Weight: 68.1 kg

DRUGS (3)
  1. FOLIC ACID [Concomitant]
     Indication: ANKYLOSING SPONDYLITIS
  2. METHOTREXATE [Concomitant]
     Indication: ANKYLOSING SPONDYLITIS
  3. HUMIRA [Suspect]
     Indication: ANKYLOSING SPONDYLITIS
     Dates: start: 20080101, end: 20110901

REACTIONS (4)
  - PSORIASIS [None]
  - ERYTHEMA [None]
  - PRURITUS [None]
  - DRY SKIN [None]
